FAERS Safety Report 20171577 (Version 1)
Quarter: 2021Q4

REPORT INFORMATION
  Report Type: Report from Study
  Country: FR (occurrence: FR)
  Receive Date: 20211210
  Receipt Date: 20211210
  Transmission Date: 20220303
  Serious: Yes (Hospitalization, Other)
  Sender: FDA-Public Use
  Company Number: FR-PFIZER INC-202101723485

PATIENT
  Weight: 15.7 kg

DRUGS (11)
  1. GEMTUZUMAB OZOGAMICIN [Suspect]
     Active Substance: GEMTUZUMAB OZOGAMICIN
     Indication: Acute myeloid leukaemia
     Dosage: 1.9 MG(OTHER)
     Route: 042
     Dates: start: 20211030, end: 20211105
  2. CYTARABINE [Suspect]
     Active Substance: CYTARABINE
     Indication: Acute myeloid leukaemia
     Dosage: 100 MG, 1X/DAY
     Route: 042
     Dates: start: 20211027, end: 20211106
  3. MITOXANTRONE [Suspect]
     Active Substance: MITOXANTRONE HYDROCHLORIDE
     Indication: Acute myeloid leukaemia
     Dosage: 12 MG/M2, 1X/DAY
     Route: 042
     Dates: start: 20211027, end: 20211030
  4. PIPERACILLIN SODIUM\TAZOBACTAM SODIUM [Concomitant]
     Active Substance: PIPERACILLIN SODIUM\TAZOBACTAM SODIUM
     Indication: Antibiotic therapy
     Dosage: 1.6 G, 3X/DAY
     Dates: start: 20211021, end: 20211031
  5. ACETAMINOPHEN [Concomitant]
     Active Substance: ACETAMINOPHEN
     Indication: Pain
     Dosage: 230 MG, 2X/DAY
     Dates: start: 20211106
  6. ALIZAPRIDE [Concomitant]
     Active Substance: ALIZAPRIDE
     Indication: Prophylaxis of nausea and vomiting
     Dosage: 16 MG(OTHER)
     Dates: start: 20211027
  7. ONDANSETRON [Concomitant]
     Active Substance: ONDANSETRON
     Indication: Prophylaxis of nausea and vomiting
     Dosage: 230 MG, 2X/DAY
     Dates: start: 20211027
  8. POLYETHYLENE GLYCOLS [Concomitant]
     Active Substance: POLYETHYLENE GLYCOLS
     Indication: Constipation
     Dosage: 4 G, 3X/DAY
     Dates: start: 20211104, end: 20211105
  9. DEXAMETHASONE SODIUM PHOSPHATE\NEOMYCIN SULFATE [Concomitant]
     Active Substance: DEXAMETHASONE SODIUM PHOSPHATE\NEOMYCIN SULFATE
     Indication: Prophylaxis
     Dosage: 1 DF, 4X/DAY
     Dates: start: 20211027, end: 20211110
  10. POVIDON [Concomitant]
     Indication: Prophylaxis
     Dosage: 1 DF, 4X/DAY
     Dates: start: 20211027, end: 20211110
  11. VITA 1 [Concomitant]
     Indication: Prophylaxis
     Dosage: UNK, 1X/DAY(1 APPLICATION/DAY)
     Dates: start: 20211027, end: 20211110

REACTIONS (3)
  - Fungaemia [Not Recovered/Not Resolved]
  - Candida infection [Not Recovered/Not Resolved]
  - Febrile neutropenia [Not Recovered/Not Resolved]

NARRATIVE: CASE EVENT DATE: 20211107
